FAERS Safety Report 16679592 (Version 2)
Quarter: 2019Q3

REPORT INFORMATION
  Report Type: Spontaneous
  Country: US (occurrence: US)
  Receive Date: 20190807
  Receipt Date: 20190925
  Transmission Date: 20191004
  Serious: Yes (Other)
  Sender: FDA-Public Use
  Company Number: US-TEVA-2019-US-1087189

PATIENT
  Age: 32 Year
  Sex: Female

DRUGS (1)
  1. TRI-LO SPRINTEC [Suspect]
     Active Substance: ETHINYL ESTRADIOL\NORGESTIMATE
     Indication: CONTRACEPTION
     Route: 065

REACTIONS (13)
  - Irritability [Recovering/Resolving]
  - Anxiety [Recovering/Resolving]
  - Abdominal distension [Recovering/Resolving]
  - Abnormal behaviour [Recovering/Resolving]
  - Weight increased [Recovering/Resolving]
  - Hormone level abnormal [Recovering/Resolving]
  - Product substitution issue [Unknown]
  - Depression [Recovering/Resolving]
  - Loss of libido [Recovering/Resolving]
  - Suicidal ideation [Recovering/Resolving]
  - Emotional distress [Unknown]
  - Mood altered [Recovering/Resolving]
  - Thinking abnormal [Recovering/Resolving]
